FAERS Safety Report 9524398 (Version 1)
Quarter: 2013Q3

REPORT INFORMATION
  Report Type: Spontaneous
  Country: US (occurrence: US)
  Receive Date: 20130916
  Receipt Date: 20130916
  Transmission Date: 20140515
  Serious: Yes (Hospitalization)
  Sender: FDA-Public Use
  Company Number: US-SANOFI-AVENTIS-2013SA089760

PATIENT
  Age: 63 Year
  Sex: Female

DRUGS (3)
  1. LANTUS SOLOSTAR [Suspect]
     Indication: TYPE 2 DIABETES MELLITUS
     Dosage: 42-46 UNITS AM AND PM
     Route: 058
  2. METFORMIN [Suspect]
     Route: 065
  3. SOLOSTAR [Concomitant]

REACTIONS (5)
  - Gastrointestinal disorder [Unknown]
  - Abscess [Unknown]
  - Diarrhoea [Unknown]
  - Abdominal distension [Unknown]
  - Blood glucose increased [Unknown]
